FAERS Safety Report 24621518 (Version 2)
Quarter: 2024Q4

REPORT INFORMATION
  Report Type: Spontaneous
  Country: US (occurrence: US)
  Receive Date: 20241114
  Receipt Date: 20241115
  Transmission Date: 20250114
  Serious: No
  Sender: NOVARTIS
  Company Number: US-SANDOZ-SDZ2024US085633

PATIENT
  Age: 58 Year
  Sex: Male
  Weight: 119.7 kg

DRUGS (17)
  1. ROSUVASTATIN [Suspect]
     Active Substance: ROSUVASTATIN
     Indication: Product used for unknown indication
     Dosage: UNK
     Route: 065
  2. LEQVIO [Suspect]
     Active Substance: INCLISIRAN SODIUM
     Indication: Type V hyperlipidaemia
     Dosage: 284 MG (EVERY 6 MONTHS)
     Route: 058
     Dates: start: 20230210
  3. AMLODIPINE [Concomitant]
     Active Substance: AMLODIPINE BESYLATE
     Indication: Product used for unknown indication
     Dosage: 5 MG, QD
     Route: 048
  4. ASPIRIN [Concomitant]
     Active Substance: ASPIRIN
     Indication: Product used for unknown indication
     Dosage: UNK (TAKE 1 TO LET (81 MY TOTAL) BY MOUTH)
     Route: 048
     Dates: start: 20160115
  5. LIPITOR [Concomitant]
     Active Substance: ATORVASTATIN CALCIUM
     Indication: Product used for unknown indication
     Dosage: UNK (1 TABLET (10 MY TOTAL) BY MOUTH)
     Route: 048
     Dates: start: 20160115
  6. BACITRACIN [Concomitant]
     Active Substance: BACITRACIN
     Indication: Product used for unknown indication
     Dosage: UNK (500 UNIT/GRAM)
     Route: 065
     Dates: start: 20160321
  7. CIPRO [Concomitant]
     Active Substance: CIPROFLOXACIN HYDROCHLORIDE
     Indication: Product used for unknown indication
     Dosage: 1000 MG, QD (500 MG, BID)
     Route: 048
     Dates: start: 20160503
  8. JANUVIA [Concomitant]
     Active Substance: SITAGLIPTIN PHOSPHATE
     Indication: Product used for unknown indication
     Dosage: UNK
     Route: 065
     Dates: start: 20160502
  9. JARDIANCE [Concomitant]
     Active Substance: EMPAGLIFLOZIN
     Indication: Product used for unknown indication
     Dosage: 25 MG (25 MG, 1 THBLET (25 MY TOTAT) BY MOUTH NIGHTLY AT BEDTIME)
     Route: 048
     Dates: start: 20230109
  10. CLARITIN [Concomitant]
     Active Substance: LORATADINE
     Indication: Product used for unknown indication
     Dosage: 10 MG
     Route: 048
     Dates: start: 20160115
  11. COZAAR [Concomitant]
     Active Substance: LOSARTAN POTASSIUM
     Indication: Product used for unknown indication
     Dosage: 100 MG (1 TABLET (100 MG TOTAL) BY MOUTH)
     Route: 048
     Dates: start: 20160115
  12. GLUCOPHAGE XR [Concomitant]
     Active Substance: METFORMIN HYDROCHLORIDE
     Indication: Product used for unknown indication
     Dosage: 500 MG, QD (TAKE,4 TABLETS SY MOUTH DAILY WITH BREAKFAST FOR DIARETES)
     Route: 065
     Dates: start: 20230104
  13. MINOCIN [Concomitant]
     Active Substance: MINOCYCLINE HYDROCHLORIDE
     Indication: Product used for unknown indication
     Dosage: UNK
     Route: 065
     Dates: start: 20160321
  14. DYNACIN [Concomitant]
     Active Substance: MINOCYCLINE HYDROCHLORIDE
     Indication: Product used for unknown indication
     Dosage: UNK
     Route: 065
     Dates: start: 20160321
  15. ROXICODONE [Concomitant]
     Active Substance: OXYCODONE HYDROCHLORIDE
     Indication: Product used for unknown indication
     Dosage: UNK (ORM PILFPO Q_4-6 HRS PRN PAIN UP TO 6 PILLS A DAY)
     Route: 065
     Dates: start: 20160302
  16. CIALIS [Concomitant]
     Active Substance: TADALAFIL
     Indication: Product used for unknown indication
     Dosage: UNK (1 TABLET (20 MG TOTAL) BY MOUTH DAILY AS NEEDED FOR ERECTILE DYSFUNCTION (0.5 TO 1 TAB AS NEEDE
     Route: 048
  17. VITAMIN D3 [Concomitant]
     Active Substance: CHOLECALCIFEROL
     Indication: Product used for unknown indication
     Dosage: UNK (1 CAPSULE (2,000 URLITS TOTAL) BY MOUTH DAILY)
     Route: 065
     Dates: start: 20160115

REACTIONS (1)
  - Drug hypersensitivity [Unknown]
